FAERS Safety Report 7090974-5 (Version None)
Quarter: 2010Q4

REPORT INFORMATION
  Report Type: 
  Country: None (occurrence: None)
  Receive Date: 20101105
  Receipt Date: 20101105
  Transmission Date: 20110411
  Serious: Yes (Other)
  Sender: FDA-Public Use
  Company Number: None

PATIENT
  Age: 74 Year
  Sex: Male
  Weight: 70.5 kg

DRUGS (2)
  1. UROCRIT-K 1080 MG UPSHER-SMITH [Suspect]
     Indication: NEPHROLITHIASIS
     Dosage: 1080MG T.I.D. PO
     Route: 048
     Dates: start: 20100916
  2. UROCRIT-K 1080 MG UPSHER-SMITH [Suspect]
     Indication: NEPHROLITHIASIS
     Dosage: 1080MG T.I.D. PO
     Route: 048
     Dates: start: 20101020

REACTIONS (1)
  - TEMPOROMANDIBULAR JOINT SYNDROME [None]
